FAERS Safety Report 17089441 (Version 1)
Quarter: 2019Q4

REPORT INFORMATION
  Report Type: Spontaneous
  Country: US (occurrence: US)
  Receive Date: 20191030
  Receipt Date: 20191030
  Transmission Date: 20200122
  Serious: No
  Sender: FDA-Public Use
  Company Number: None

PATIENT
  Age: 43 Year
  Sex: Female
  Weight: 79.38 kg

DRUGS (1)
  1. VRAYLAR [Suspect]
     Active Substance: CARIPRAZINE
     Dosage: ?          QUANTITY:1 DF DOSAGE FORM;?

REACTIONS (5)
  - Arthralgia [None]
  - Dizziness [None]
  - Urticaria [None]
  - Pain in extremity [None]
  - Rash [None]

NARRATIVE: CASE EVENT DATE: 20190915
